FAERS Safety Report 20771023 (Version 1)
Quarter: 2022Q2

REPORT INFORMATION
  Report Type: Spontaneous
  Country: US (occurrence: US)
  Receive Date: 20220429
  Receipt Date: 20220429
  Transmission Date: 20220721
  Serious: Yes (Hospitalization)
  Sender: FDA-Public Use
  Company Number: US-BRISTOL-MYERS SQUIBB COMPANY-2022-025689

PATIENT
  Age: 84 Year
  Sex: Male
  Weight: 69.85 kg

DRUGS (1)
  1. REVLIMID [Suspect]
     Active Substance: LENALIDOMIDE
     Indication: Plasma cell myeloma
     Dosage: 3W, 1W OFF
     Route: 048
     Dates: start: 20220301, end: 20220405

REACTIONS (4)
  - Pyrexia [Unknown]
  - Chills [Unknown]
  - Rash [Unknown]
  - Generalised oedema [Unknown]
